FAERS Safety Report 23778955 (Version 1)
Quarter: 2024Q2

REPORT INFORMATION
  Report Type: Spontaneous
  Country: US (occurrence: None)
  Receive Date: 20240424
  Receipt Date: 20240424
  Transmission Date: 20240716
  Serious: Yes (Hospitalization)
  Sender: FDA-Public Use
  Company Number: None

PATIENT
  Sex: Male
  Weight: 78.2 kg

DRUGS (14)
  1. FLUOROURACIL [Suspect]
     Active Substance: FLUOROURACIL
     Dates: start: 20240406
  2. IRINOTECAN [Suspect]
     Active Substance: IRINOTECAN
     Dates: start: 20240404
  3. LEUCOVORIN CALCIUM [Suspect]
     Active Substance: LEUCOVORIN CALCIUM
     Dates: start: 20240404
  4. ELOXATIN [Suspect]
     Active Substance: OXALIPLATIN
     Dates: start: 20240404
  5. METHYLPHENIDATE [Concomitant]
     Active Substance: METHYLPHENIDATE
  6. ALIGN [Concomitant]
     Active Substance: BIFIDOBACTERIUM LONGUM SUBSP. INFANTIS
  7. CREON [Concomitant]
     Active Substance: PANCRELIPASE AMYLASE\PANCRELIPASE LIPASE\PANCRELIPASE PROTEASE
  8. FLONASE [Concomitant]
     Active Substance: FLUTICASONE PROPIONATE
  9. FOLIC ACID [Concomitant]
     Active Substance: FOLIC ACID
  10. LISINOPRIL [Concomitant]
     Active Substance: LISINOPRIL
  11. PROTONIX [Concomitant]
     Active Substance: PANTOPRAZOLE SODIUM
  12. TYLENOL [Concomitant]
     Active Substance: ACETAMINOPHEN
  13. VITAMIN D [Concomitant]
     Active Substance: VITAMIN D NOS
  14. XANAX [Concomitant]
     Active Substance: ALPRAZOLAM

REACTIONS (2)
  - Sepsis [None]
  - Terminal ileitis [None]

NARRATIVE: CASE EVENT DATE: 20240413
